FAERS Safety Report 17117226 (Version 1)
Quarter: 2019Q4

REPORT INFORMATION
  Report Type: Spontaneous
  Country: CN (occurrence: CN)
  Receive Date: 20191205
  Receipt Date: 20191205
  Transmission Date: 20200122
  Serious: Yes (Other)
  Sender: FDA-Public Use
  Company Number: CN-JNJFOC-20191144537

PATIENT

DRUGS (1)
  1. INFANTS TYLENOL [Suspect]
     Active Substance: ACETAMINOPHEN
     Indication: PATENT DUCTUS ARTERIOSUS
     Route: 048

REACTIONS (6)
  - Product use in unapproved indication [Unknown]
  - Product use issue [Unknown]
  - Urine output decreased [Unknown]
  - Upper gastrointestinal haemorrhage [Unknown]
  - Off label use [Unknown]
  - Therapeutic response unexpected [Unknown]
